FAERS Safety Report 16696983 (Version 1)
Quarter: 2019Q4

REPORT INFORMATION
  Report Type: Spontaneous
  Country: US (occurrence: US)
  Receive Date: 20190812
  Receipt Date: 20190812
  Transmission Date: 20200122
  Serious: Yes (Hospitalization, Other)
  Sender: FDA-Public Use
  Company Number: None

PATIENT
  Age: 54 Year
  Sex: Female
  Weight: 58.95 kg

DRUGS (2)
  1. THYMOGLOBULIN [Suspect]
     Active Substance: LAPINE T-LYMPHOCYTE IMMUNE GLOBULIN
     Indication: RENAL TRANSPLANT
     Dosage: ?          OTHER FREQUENCY:ONCE;?
     Route: 040
  2. THYMOGLOBULIN [Suspect]
     Active Substance: LAPINE T-LYMPHOCYTE IMMUNE GLOBULIN
     Indication: IMMUNOSUPPRESSION
     Dosage: ?          OTHER FREQUENCY:ONCE;?
     Route: 040

REACTIONS (8)
  - Blood creatinine increased [None]
  - Haemoglobin decreased [None]
  - Haematocrit decreased [None]
  - Haptoglobin decreased [None]
  - Platelet count decreased [None]
  - Blood lactate dehydrogenase increased [None]
  - Renal transplant [None]
  - Complications of transplanted kidney [None]

NARRATIVE: CASE EVENT DATE: 20190728
